FAERS Safety Report 12219055 (Version 3)
Quarter: 2016Q2

REPORT INFORMATION
  Report Type: Spontaneous
  Country: US (occurrence: US)
  Receive Date: 20160329
  Receipt Date: 20160520
  Transmission Date: 20160815
  Serious: Yes (Death)
  Sender: FDA-Public Use
  Company Number: US-INSYS THERAPEUTICS, INC-INS201603-000126

PATIENT
  Age: 32 Year
  Sex: Male

DRUGS (10)
  1. VITAMIN D3 [Concomitant]
     Active Substance: CHOLECALCIFEROL
  2. SUBSYS [Suspect]
     Active Substance: FENTANYL
     Indication: BACK PAIN
     Route: 060
  3. BELSOMRA [Concomitant]
     Active Substance: SUVOREXANT
  4. VITAMIN D [Concomitant]
     Active Substance: CHOLECALCIFEROL
  5. DURAGESIC [Concomitant]
     Active Substance: FENTANYL
  6. KEFLEX [Concomitant]
     Active Substance: CEPHALEXIN
  7. KLONOPIN [Concomitant]
     Active Substance: CLONAZEPAM
  8. LOPRESSOR [Concomitant]
     Active Substance: METOPROLOL TARTRATE
  9. SUBSYS [Suspect]
     Active Substance: FENTANYL
     Indication: BACK PAIN
  10. XANAX [Concomitant]
     Active Substance: ALPRAZOLAM

REACTIONS (4)
  - Death [Fatal]
  - Off label use [Unknown]
  - Intentional product misuse [Unknown]
  - Incorrect route of drug administration [Unknown]

NARRATIVE: CASE EVENT DATE: 20160226
